FAERS Safety Report 7679732-8 (Version None)
Quarter: 2011Q3

REPORT INFORMATION
  Report Type: 
  Country: None (occurrence: None)
  Receive Date: 20110812
  Receipt Date: 20110802
  Transmission Date: 20111222
  Serious: Yes (Hospitalization, Other)
  Sender: FDA-Public Use
  Company Number: JP-JNJFOC-20110802946

PATIENT
  Sex: Female
  Weight: 65 kg

DRUGS (21)
  1. DOXORUBICIN HCL [Suspect]
     Route: 042
     Dates: start: 20090819, end: 20090819
  2. AZUNOL [Concomitant]
     Indication: PROPHYLAXIS
     Route: 049
     Dates: start: 20090624
  3. SHAKUYAKU-K ANZO-TO [Concomitant]
     Indication: NEUROPATHY PERIPHERAL
     Route: 048
     Dates: start: 20090630
  4. DOXORUBICIN HCL [Suspect]
     Indication: OVARIAN CANCER RECURRENT
     Route: 042
     Dates: start: 20090624, end: 20090624
  5. ALLEGRA [Concomitant]
     Indication: PALMAR ERYTHEMA
     Route: 048
     Dates: start: 20090731
  6. OXYCONTIN [Concomitant]
     Route: 048
     Dates: start: 20090912, end: 20091013
  7. DOXORUBICIN HCL [Suspect]
     Route: 042
     Dates: start: 20090722, end: 20090722
  8. AMOBAN [Concomitant]
     Indication: PROPHYLAXIS
     Route: 048
     Dates: start: 20090626
  9. BIOFERMIN [Concomitant]
     Indication: PROPHYLAXIS
     Route: 048
  10. OXYCONTIN [Concomitant]
     Indication: PRODUCT USED FOR UNKNOWN INDICATION
     Route: 048
     Dates: start: 20091007, end: 20091009
  11. JUVELA [Concomitant]
     Indication: PRODUCT USED FOR UNKNOWN INDICATION
     Route: 061
     Dates: start: 20090821
  12. OXYCONTIN [Concomitant]
     Route: 048
     Dates: start: 20091014
  13. LOXONIN [Concomitant]
     Indication: PRODUCT USED FOR UNKNOWN INDICATION
     Route: 048
     Dates: start: 20091009
  14. DOXORUBICIN HCL [Suspect]
     Route: 042
     Dates: start: 20090925, end: 20090925
  15. RINDERON-VG [Concomitant]
     Indication: PRODUCT USED FOR UNKNOWN INDICATION
     Route: 061
     Dates: start: 20090821
  16. LAXOBERON [Concomitant]
     Indication: CONSTIPATION
     Route: 048
     Dates: start: 20090627
  17. RESTAMIN [Concomitant]
     Indication: PALMAR ERYTHEMA
     Route: 061
     Dates: start: 20090731
  18. OXINORM [Concomitant]
     Indication: PRODUCT USED FOR UNKNOWN INDICATION
     Route: 048
     Dates: start: 20091007
  19. OXYCONTIN [Concomitant]
     Route: 048
     Dates: start: 20091010, end: 20091011
  20. FAMOTIDINE [Concomitant]
     Indication: PROPHYLAXIS
     Route: 048
     Dates: start: 20091012
  21. DEXALTIN [Concomitant]
     Indication: STOMATITIS
     Route: 061
     Dates: start: 20090706

REACTIONS (2)
  - NEUROPATHY PERIPHERAL [None]
  - ABDOMINAL PAIN [None]
